FAERS Safety Report 4479330-3 (Version None)
Quarter: 2004Q4

REPORT INFORMATION
  Report Type: 
  Country: None (occurrence: None)
  Receive Date: 20041015
  Receipt Date: 20040927
  Transmission Date: 20050328
  Serious: Yes (Death)
  Sender: FDA-Public Use
  Company Number: 2004235681US

PATIENT
  Age: 55 Year
  Sex: 0

DRUGS (3)
  1. GLYNASE [Suspect]
     Dosage: ORAL
     Route: 048
  2. PROPAFENONE HCL [Suspect]
     Dosage: ORAL
     Route: 048
  3. ZOLPIDEM (ZOLPIDEM) TABLET [Suspect]
     Dosage: ORAL
     Route: 048

REACTIONS (2)
  - COMPLETED SUICIDE [None]
  - MULTIPLE DRUG OVERDOSE INTENTIONAL [None]
